FAERS Safety Report 7671810-2 (Version None)
Quarter: 2011Q3

REPORT INFORMATION
  Report Type: 
  Country: None (occurrence: None)
  Receive Date: 20110809
  Receipt Date: 20110803
  Transmission Date: 20111222
  Serious: Yes (Other)
  Sender: FDA-Public Use
  Company Number: GB-ABBOTT-11P-167-0843975-00

PATIENT
  Sex: Female

DRUGS (1)
  1. HUMIRA [Suspect]
     Indication: PSORIASIS
     Route: 058

REACTIONS (6)
  - PAIN [None]
  - BONE DENSITY DECREASED [None]
  - ARTHRALGIA [None]
  - WEIGHT INCREASED [None]
  - FALL [None]
  - WRIST FRACTURE [None]
